FAERS Safety Report 19458196 (Version 2)
Quarter: 2021Q2

REPORT INFORMATION
  Report Type: Spontaneous
  Country: GB (occurrence: GB)
  Receive Date: 20210624
  Receipt Date: 20210628
  Transmission Date: 20210717
  Serious: Yes (Life-Threatening, Hospitalization, Other)
  Sender: FDA-Public Use
  Company Number: NVSC2004GB000444

PATIENT
  Age: 66 Year
  Sex: Male

DRUGS (5)
  1. TYKERB [Suspect]
     Active Substance: LAPATINIB DITOSYLATE
     Indication: SQUAMOUS CELL CARCINOMA
     Dosage: 500 MG THERAPY END FLAG: NOT APPLICABLE
     Route: 048
     Dates: start: 20040304, end: 20040313
  2. DICLOFENAC [Suspect]
     Active Substance: DICLOFENAC
     Indication: PAIN
     Dosage: 50 MG, TID
     Route: 048
  3. TYKERB [Suspect]
     Active Substance: LAPATINIB DITOSYLATE
     Dosage: UNK
     Route: 065
  4. CISPLATIN. [Suspect]
     Active Substance: CISPLATIN
     Indication: SQUAMOUS CELL CARCINOMA
     Dosage: 100 MG/M2 THERAPY END FLAG: DRUG STILL BEING ADMINISTERED
     Route: 048
     Dates: start: 20040311
  5. DEXAMETHASONE. [Suspect]
     Active Substance: DEXAMETHASONE
     Indication: NAUSEA
     Dosage: 2 MG, TID
     Route: 048
     Dates: start: 20040311, end: 20040314

REACTIONS (3)
  - Duodenal ulcer perforation [Recovered/Resolved]
  - Haematemesis [Unknown]
  - Abdominal pain [Unknown]

NARRATIVE: CASE EVENT DATE: 20040314
